FAERS Safety Report 23847082 (Version 1)
Quarter: 2024Q2

REPORT INFORMATION
  Report Type: Spontaneous
  Country: ZA (occurrence: None)
  Receive Date: 20240513
  Receipt Date: 20240513
  Transmission Date: 20240716
  Serious: Yes (Death)
  Sender: FDA-Public Use
  Company Number: 2024A110271

PATIENT
  Age: 59 Year
  Sex: Male

DRUGS (10)
  1. DAPAGLIFLOZIN PROPANEDIOL [Suspect]
     Active Substance: DAPAGLIFLOZIN PROPANEDIOL
     Route: 048
  2. GLICLAZIDE [Concomitant]
     Active Substance: GLICLAZIDE
     Dosage: 30.0MG UNKNOWN
  3. SPIRACTIN [Concomitant]
  4. EXLOV XR [Concomitant]
     Dosage: 50.0MG UNKNOWN
  5. BISOPROLOL FUMARATE [Concomitant]
     Active Substance: BISOPROLOL FUMARATE
     Dosage: 5.0MG UNKNOWN
  6. LIPOGEN [Concomitant]
     Dosage: 40.0MG UNKNOWN
  7. ENALAPRIL MALEATE [Concomitant]
     Active Substance: ENALAPRIL MALEATE
     Dosage: 10.0MG UNKNOWN
  8. AMIODARONE [Concomitant]
     Active Substance: AMIODARONE
     Dosage: 200.0MG UNKNOWN
  9. FUROSEMIDE [Concomitant]
     Active Substance: FUROSEMIDE
     Dosage: 40.0MG UNKNOWN
  10. LEVOTHYROXINE [Concomitant]
     Active Substance: LEVOTHYROXINE\LEVOTHYROXINE SODIUM
     Dosage: 200.0UG UNKNOWN

REACTIONS (1)
  - Cardiac disorder [Fatal]
